FAERS Safety Report 4379346-1 (Version None)
Quarter: 2004Q2

REPORT INFORMATION
  Report Type: 
  Country: None (occurrence: None)
  Receive Date: 20040610
  Receipt Date: 20040528
  Transmission Date: 20050107
  Serious: Yes (Other)
  Sender: FDA-Public Use
  Company Number: 2004036533

PATIENT
  Age: 9 Year
  Sex: Male
  Weight: 58.9676 kg

DRUGS (2)
  1. ZYRTEC [Suspect]
     Indication: HYPERSENSITIVITY
     Dosage: 5 MG (5 MG, DAILY), ORAL
     Route: 048
     Dates: start: 19970101
  2. NEURONTIN [Suspect]
     Indication: MIGRAINE
     Dosage: ORAL
     Route: 048
     Dates: start: 20031001, end: 20040401

REACTIONS (11)
  - AGGRESSION [None]
  - ANXIETY [None]
  - MIGRAINE [None]
  - OBSESSIVE-COMPULSIVE DISORDER [None]
  - PERSONALITY DISORDER [None]
  - PHOTOPHOBIA [None]
  - SINUS CONGESTION [None]
  - SINUS DISORDER [None]
  - SINUS HEADACHE [None]
  - SWELLING [None]
  - SWELLING FACE [None]
